FAERS Safety Report 6453245-3 (Version None)
Quarter: 2009Q4

REPORT INFORMATION
  Report Type: 
  Country: None (occurrence: None)
  Receive Date: 20091124
  Receipt Date: 20091113
  Transmission Date: 20100525
  Serious: Yes (Other)
  Sender: FDA-Public Use
  Company Number: DE-PFIZER INC-2008150231

PATIENT
  Age: 45 Year
  Sex: Male

DRUGS (1)
  1. DIFLUCAN [Suspect]
     Indication: FUNGAL SKIN INFECTION
     Dosage: 150 MG ONCE WEEKLY
     Route: 048
     Dates: start: 20081001

REACTIONS (3)
  - DYSAESTHESIA [None]
  - MYALGIA [None]
  - PERIPHERAL SENSORIMOTOR NEUROPATHY [None]
